FAERS Safety Report 7335221-1 (Version None)
Quarter: 2011Q1

REPORT INFORMATION
  Report Type: 
  Country: None (occurrence: None)
  Receive Date: 20110217
  Receipt Date: 20100104
  Transmission Date: 20110831
  Serious: Yes (Other)
  Sender: FDA-Public Use
  Company Number: 455998

PATIENT
  Age: 77 Year
  Sex: Male
  Weight: 95 kg

DRUGS (1)
  1. PRECEDEX [Suspect]
     Indication: SEDATIVE THERAPY
     Dosage: INTRAVENOUS
     Route: 042
     Dates: start: 20091216, end: 20091216

REACTIONS (1)
  - INFUSION SITE EXTRAVASATION [None]
